FAERS Safety Report 9813220 (Version 1)
Quarter: 2014Q1

REPORT INFORMATION
  Report Type: Report from Study
  Country: US (occurrence: US)
  Receive Date: 20140113
  Receipt Date: 20140113
  Transmission Date: 20141002
  Serious: Yes (Hospitalization)
  Sender: FDA-Public Use
  Company Number: US-IPSEN BIOPHARMACEUTICALS, INC.-2014-0063

PATIENT
  Age: 84 Year
  Sex: Female

DRUGS (3)
  1. SOMATULINE DEPOT INJECTION (90MG) [Suspect]
     Indication: ACROMEGALY
     Dosage: 90 MG
     Route: 058
     Dates: start: 20120713
  2. THREE KINDS OF BLOOD PRESSURE PILLS [Concomitant]
     Indication: HYPERTENSION
     Dosage: NOT REPORTED
     Route: 048
  3. INSULIN [Concomitant]
     Indication: DIABETES MELLITUS
     Dosage: NOT REPORTED
     Route: 065

REACTIONS (1)
  - Breast cancer metastatic [Unknown]
